FAERS Safety Report 5505074-2 (Version None)
Quarter: 2007Q4

REPORT INFORMATION
  Report Type: 
  Country: None (occurrence: None)
  Receive Date: 20071031
  Receipt Date: 20071031
  Transmission Date: 20080405
  Serious: Yes (Other)
  Sender: FDA-Public Use
  Company Number: None

PATIENT
  Sex: Female

DRUGS (5)
  1. REVLIMID [Suspect]
     Indication: MULTIPLE MYELOMA
     Dosage: 5MG  DAILY 21D/28D  PO
     Route: 048
  2. FENTANYL [Concomitant]
  3. LORAZEPAM [Concomitant]
  4. TRAZODONE HCL [Concomitant]
  5. FLUOXETINE [Concomitant]

REACTIONS (1)
  - NEUTROPENIA [None]
